FAERS Safety Report 6217007-4 (Version None)
Quarter: 2009Q2

REPORT INFORMATION
  Report Type: 
  Country: None (occurrence: None)
  Receive Date: 20090604
  Receipt Date: 20090521
  Transmission Date: 20091009
  Serious: Yes (Other)
  Sender: FDA-Public Use
  Company Number: POMP-1000601

PATIENT
  Age: 5 Month
  Sex: Female
  Weight: 4.4 kg

DRUGS (2)
  1. MYOZYME [Suspect]
     Indication: GLYCOGEN STORAGE DISEASE TYPE II
     Dosage: 20 MG/KG, Q2W, INTRAVENOUS
     Route: 042
     Dates: start: 20090304
  2. PROPRANOLOL [Suspect]
     Indication: DRUG USE FOR UNKNOWN INDICATION
     Dosage: 16 MG QD ORAL
     Route: 048

REACTIONS (5)
  - APATHY [None]
  - BRADYCARDIA [None]
  - OXYGEN SATURATION DECREASED [None]
  - POOR PERIPHERAL CIRCULATION [None]
  - WHEEZING [None]
